FAERS Safety Report 9856135 (Version 1)
Quarter: 2014Q1

REPORT INFORMATION
  Report Type: Spontaneous
  Country: DE (occurrence: DE)
  Receive Date: 20140130
  Receipt Date: 20140130
  Transmission Date: 20141002
  Serious: Yes (Other)
  Sender: FDA-Public Use
  Company Number: DE-ELI_LILLY_AND_COMPANY-DE201401008306

PATIENT
  Sex: Male

DRUGS (1)
  1. CIALIS [Suspect]
     Indication: PRODUCT USED FOR UNKNOWN INDICATION
     Dosage: 1 DF, UNKNOWN
     Route: 048

REACTIONS (2)
  - Road traffic accident [Recovered/Resolved]
  - Dizziness [Unknown]
